FAERS Safety Report 8072919-4 (Version None)
Quarter: 2012Q1

REPORT INFORMATION
  Report Type: 
  Country: None (occurrence: None)
  Receive Date: 20120126
  Receipt Date: 20120124
  Transmission Date: 20120608
  Serious: Yes (Hospitalization)
  Sender: FDA-Public Use
  Company Number: US-PFIZER INC-K200900483

PATIENT
  Age: 48 Year

DRUGS (13)
  1. ALTACE [Suspect]
     Dosage: UNK
  2. EFAVIRENZ [Suspect]
     Dosage: UNK
  3. ZIDOVUDINE [Suspect]
     Dosage: UNK
  4. ACETYLSALICYLIC ACID SRT [Suspect]
     Dosage: UNK
  5. TENOFOVIR [Suspect]
     Dosage: UNK
  6. NELFINAVIR MESILATE [Suspect]
     Dosage: UNK
  7. LAMIVUDINE [Suspect]
     Dosage: UNK
  8. ATORVASTATIN [Concomitant]
     Dosage: 10 MG, UNK
  9. OMEGA-3 /00931501/ [Concomitant]
     Dosage: UNK BQ, BID
  10. PRAVASTATIN [Concomitant]
     Dosage: UNK
  11. DIDANOSINE [Suspect]
     Dosage: UNK
  12. KALETRA [Suspect]
     Dosage: UNK
  13. STAVUDINE [Suspect]
     Dosage: UNK

REACTIONS (2)
  - DRUG RESISTANCE [None]
  - MYOCARDIAL INFARCTION [None]
